FAERS Safety Report 20514036 (Version 1)
Quarter: 2022Q1

REPORT INFORMATION
  Report Type: Spontaneous
  Country: US (occurrence: US)
  Receive Date: 20220224
  Receipt Date: 20220224
  Transmission Date: 20220424
  Serious: No
  Sender: FDA-Public Use
  Company Number: US-AMNEAL PHARMACEUTICALS-2021-AMRX-02363

PATIENT
  Sex: Male

DRUGS (3)
  1. RYTARY [Suspect]
     Active Substance: CARBIDOPA\LEVODOPA
     Indication: Product used for unknown indication
     Dosage: 1 DOSAGE FORM, 4X/DAY
     Route: 048
  2. INBRIJA [Suspect]
     Active Substance: LEVODOPA
     Indication: On and off phenomenon
     Dosage: 84 MILLIGRAM, AS NEEDED, NOT TO EXCEED 5 DOSES PER DAY
     Dates: start: 2020
  3. INBRIJA [Suspect]
     Active Substance: LEVODOPA
     Indication: Parkinson^s disease

REACTIONS (6)
  - Drug intolerance [Unknown]
  - Cough [Recovered/Resolved]
  - Patient uncooperative [Recovered/Resolved]
  - Movement disorder [Not Recovered/Not Resolved]
  - Abnormal behaviour [Not Recovered/Not Resolved]
  - Hallucination [Not Recovered/Not Resolved]
